FAERS Safety Report 8976387 (Version 1)
Quarter: 2012Q4

REPORT INFORMATION
  Report Type: Report from Study
  Country: CA (occurrence: CA)
  Receive Date: 20121220
  Receipt Date: 20121220
  Transmission Date: 20130627
  Serious: Yes (Other)
  Sender: FDA-Public Use
  Company Number: CA-ROCHE-1167241

PATIENT
  Age: 46 Year
  Sex: Male

DRUGS (1)
  1. OMALIZUMAB [Suspect]
     Indication: ASTHMA
     Route: 058
     Dates: start: 20081113

REACTIONS (18)
  - Cough [Unknown]
  - Dyspnoea [Unknown]
  - Respiratory tract congestion [Unknown]
  - Asthma [Unknown]
  - Wheezing [Unknown]
  - Obstructive airways disorder [Unknown]
  - Productive cough [Unknown]
  - Sputum discoloured [Unknown]
  - Lower respiratory tract infection [Unknown]
  - Chest pain [Unknown]
  - Blood pressure increased [Unknown]
  - Sinus congestion [Unknown]
  - Nasal congestion [Unknown]
  - Nasopharyngitis [Unknown]
  - Sinusitis [Recovered/Resolved]
  - Hypersensitivity [Unknown]
  - Nasal congestion [Unknown]
  - Nasopharyngitis [Unknown]
